FAERS Safety Report 23778968 (Version 4)
Quarter: 2024Q2

REPORT INFORMATION
  Report Type: Report from Study
  Country: CA (occurrence: CA)
  Receive Date: 20240424
  Receipt Date: 20240629
  Transmission Date: 20240716
  Serious: Yes (Hospitalization)
  Sender: FDA-Public Use
  Company Number: CA-GLAXOSMITHKLINE-CA2023124352

PATIENT

DRUGS (3)
  1. MEPOLIZUMAB [Suspect]
     Active Substance: MEPOLIZUMAB
     Indication: Asthma
     Dosage: 100 MG, Q4W
     Route: 058
     Dates: start: 20190516
  2. MEPOLIZUMAB [Suspect]
     Active Substance: MEPOLIZUMAB
     Dosage: 100 MG, Q4W
     Route: 058
  3. MEPOLIZUMAB [Suspect]
     Active Substance: MEPOLIZUMAB
     Dosage: 100 MG, Q4W
     Route: 058

REACTIONS (17)
  - Hospitalisation [Not Recovered/Not Resolved]
  - Viral infection [Recovered/Resolved]
  - Fall [Unknown]
  - Contusion [Recovering/Resolving]
  - Arthralgia [Recovering/Resolving]
  - Eye inflammation [Unknown]
  - Asthma [Recovered/Resolved]
  - Localised infection [Recovered/Resolved]
  - Limb injury [Recovered/Resolved]
  - Blood pressure systolic increased [Unknown]
  - Cardiac valve disease [Unknown]
  - Oedema peripheral [Unknown]
  - Cough [Recovering/Resolving]
  - Rhinorrhoea [Unknown]
  - Sneezing [Unknown]
  - Productive cough [Recovered/Resolved]
  - Product dispensing error [Unknown]

NARRATIVE: CASE EVENT DATE: 20230101
